FAERS Safety Report 8158965-0 (Version None)
Quarter: 2012Q1

REPORT INFORMATION
  Report Type: 
  Country: None (occurrence: None)
  Receive Date: 20120223
  Receipt Date: 20120221
  Transmission Date: 20120608
  Serious: No
  Sender: FDA-Public Use
  Company Number: US-PFIZER INC-2012046030

PATIENT
  Sex: Female

DRUGS (1)
  1. CHANTIX [Suspect]
     Dosage: UNK
     Dates: start: 20120201

REACTIONS (4)
  - WEIGHT INCREASED [None]
  - HYPERPHAGIA [None]
  - HUNGER [None]
  - DRUG INEFFECTIVE [None]
